FAERS Safety Report 7905298-0 (Version None)
Quarter: 2011Q4

REPORT INFORMATION
  Report Type: 
  Country: None (occurrence: None)
  Receive Date: 20111109
  Receipt Date: 20091012
  Transmission Date: 20120403
  Serious: Yes (Death, Life-Threatening, Hospitalization, Other)
  Sender: FDA-Public Use
  Company Number: PHHY2009TW60975

PATIENT
  Sex: Male

DRUGS (3)
  1. GLEEVEC [Suspect]
     Dosage: 800 MG, UNK
     Route: 048
  2. GLEEVEC [Suspect]
     Indication: GASTROINTESTINAL STROMAL TUMOUR
     Dosage: 400 MG, UNK
     Route: 048
     Dates: start: 20090822
  3. BLOOD AND RELATED PRODUCTS [Concomitant]
     Dosage: UNK UKN, UNK

REACTIONS (13)
  - ANAEMIA [None]
  - MELAENA [None]
  - DEATH [None]
  - ULCER [None]
  - ULCER HAEMORRHAGE [None]
  - GASTROINTESTINAL HAEMORRHAGE [None]
  - TUMOUR ULCERATION [None]
  - HAEMOGLOBIN DECREASED [None]
  - PYREXIA [None]
  - FAECES DISCOLOURED [None]
  - GASTROINTESTINAL STROMAL TUMOUR [None]
  - NEOPLASM MALIGNANT [None]
  - WHITE BLOOD CELL COUNT DECREASED [None]
